FAERS Safety Report 6482404-9 (Version None)
Quarter: 2009Q4

REPORT INFORMATION
  Report Type: 
  Country: None (occurrence: None)
  Receive Date: 20091208
  Receipt Date: 20090416
  Transmission Date: 20100525
  Serious: No
  Sender: FDA-Public Use
  Company Number: US-AMGEN-TCS343162

PATIENT
  Sex: Female

DRUGS (1)
  1. ENBREL [Suspect]
     Indication: RHEUMATOID ARTHRITIS
     Route: 058

REACTIONS (12)
  - ARTHRALGIA [None]
  - ARTHROPOD BITE [None]
  - DRUG ERUPTION [None]
  - DYSURIA [None]
  - HEADACHE [None]
  - JOINT SWELLING [None]
  - LOCAL SWELLING [None]
  - NAUSEA [None]
  - OROPHARYNGEAL PAIN [None]
  - PAIN IN EXTREMITY [None]
  - RESPIRATORY TRACT CONGESTION [None]
  - URINARY TRACT INFECTION [None]
